FAERS Safety Report 5994385-2 (Version None)
Quarter: 2008Q4

REPORT INFORMATION
  Report Type: 
  Country: None (occurrence: None)
  Receive Date: 20081212
  Receipt Date: 20080909
  Transmission Date: 20090506
  Serious: No
  Sender: FDA-Public Use
  Company Number: US-ABBOTT-08P-163-0475168-00

PATIENT
  Sex: Male
  Weight: 78.088 kg

DRUGS (25)
  1. HUMIRA [Suspect]
     Indication: RHEUMATOID ARTHRITIS
     Route: 058
     Dates: start: 20080101, end: 20080301
  2. HUMIRA [Suspect]
     Dates: start: 20080301
  3. LANSOPRAZOLE [Concomitant]
     Indication: GASTROOESOPHAGEAL REFLUX DISEASE
     Route: 048
     Dates: start: 20050901
  4. PREDNISONE TAB [Concomitant]
     Indication: ORGANISING PNEUMONIA
     Route: 048
     Dates: start: 20010101
  5. PREDNISONE TAB [Concomitant]
     Indication: RHEUMATOID ARTHRITIS
     Route: 048
     Dates: start: 20050901
  6. RISEDRONATE SODIUM [Concomitant]
     Indication: MINERAL SUPPLEMENTATION
     Route: 048
     Dates: start: 20050901
  7. RISEDRONATE SODIUM [Concomitant]
  8. GLYBURIDE [Concomitant]
     Indication: DIABETES MELLITUS
     Route: 048
     Dates: start: 20050901
  9. METFORMIN HCL [Concomitant]
     Indication: DIABETES MELLITUS
     Dosage: 1000 MG IN AM AND PM DAILY
     Route: 048
     Dates: start: 20050901
  10. AVADOT [Concomitant]
     Indication: PROSTATIC DISORDER
     Route: 048
     Dates: start: 20080101
  11. CYMBACORT [Concomitant]
     Indication: CHRONIC OBSTRUCTIVE PULMONARY DISEASE
     Dosage: 160MG INHALER, 160 MCG BID
     Route: 048
     Dates: start: 20080601
  12. RANITIDINE [Concomitant]
     Indication: GASTROOESOPHAGEAL REFLUX DISEASE
     Dosage: NIGHTLY
     Route: 048
     Dates: start: 20080601
  13. ALBUTEROL SULFATE NEB [Concomitant]
     Indication: DRUG USE FOR UNKNOWN INDICATION
     Dosage: 2-3 TIMES DAILY AS NEEDED
     Route: 055
     Dates: start: 20080601
  14. ALBUTEROL SULFATE NEB [Concomitant]
     Indication: CHRONIC OBSTRUCTIVE PULMONARY DISEASE
  15. FOLIC ACID [Concomitant]
     Indication: COUGH
     Route: 048
     Dates: start: 20080801
  16. FOLIC ACID [Concomitant]
     Indication: CHRONIC OBSTRUCTIVE PULMONARY DISEASE
  17. METHOTREXATE [Concomitant]
     Indication: RHEUMATOID ARTHRITIS
     Dosage: 15 MG WEEKLY 2.5MG-6 PILLS WEEKLY
     Route: 048
     Dates: start: 20080801
  18. IPRATROPIUON BROMIDE-NASAL SPRAY [Concomitant]
     Indication: DRUG USE FOR UNKNOWN INDICATION
     Dosage: 21 MCG EACH SPRAY 2X DAILY AS NEEDED
     Route: 061
     Dates: start: 20080301
  19. IPRATROPIUON BROMIDE-NASAL SPRAY [Concomitant]
     Indication: CHRONIC OBSTRUCTIVE PULMONARY DISEASE
  20. TESALON PEARLS [Concomitant]
     Indication: COUGH
     Route: 048
     Dates: start: 20080801
  21. TESALON PEARLS [Concomitant]
     Indication: CHRONIC OBSTRUCTIVE PULMONARY DISEASE
  22. IBUPROFEN SODIUM [Concomitant]
     Indication: PAIN
     Dosage: 400 MG IN AM AND PM
     Route: 048
     Dates: start: 20080501
  23. CALCIUM [Concomitant]
     Indication: MINERAL SUPPLEMENTATION
     Route: 048
     Dates: start: 20050901
  24. ERGOCALCIFEROL [Concomitant]
     Indication: VITAMIN SUPPLEMENTATION
     Route: 048
     Dates: start: 20050901
  25. SENIOR MULTIVITAMIN SR [Concomitant]
     Indication: VITAMIN SUPPLEMENTATION
     Route: 048
     Dates: start: 20050901

REACTIONS (4)
  - COUGH [None]
  - DYSPNOEA [None]
  - MALAISE [None]
  - RED BLOOD CELL SEDIMENTATION RATE INCREASED [None]
